FAERS Safety Report 11777963 (Version 3)
Quarter: 2015Q4

REPORT INFORMATION
  Report Type: Spontaneous
  Country: US (occurrence: US)
  Receive Date: 20151125
  Receipt Date: 20151222
  Transmission Date: 20160304
  Serious: Yes (Other)
  Sender: FDA-Public Use
  Company Number: US-PFIZER INC-2015397789

PATIENT
  Age: 76 Year
  Sex: Female
  Weight: 70 kg

DRUGS (4)
  1. XALATAN [Suspect]
     Active Substance: LATANOPROST
     Indication: EYE DISORDER
     Dosage: 1 DROP AT NIGHT TIME IN EACH EYE
     Route: 047
     Dates: start: 20070316
  2. LYRICA [Concomitant]
     Active Substance: PREGABALIN
     Dosage: 75 MG, 1X/DAY CAPSULE BY MOUTH AT BEDTIME
     Route: 048
  3. LEVOTHYROXINE. [Concomitant]
     Active Substance: LEVOTHYROXINE
     Indication: HYPOTHYROIDISM
     Dosage: 0.1 MG, 1X/DAY
     Route: 048
  4. LYRICA [Concomitant]
     Active Substance: PREGABALIN
     Dosage: 150 MG, 1X/DAY CAPSULE
     Route: 048

REACTIONS (1)
  - Visual impairment [Not Recovered/Not Resolved]

NARRATIVE: CASE EVENT DATE: 2015
